FAERS Safety Report 14663961 (Version 1)
Quarter: 2018Q1

REPORT INFORMATION
  Report Type: Other
  Country: FI (occurrence: FI)
  Receive Date: 20180321
  Receipt Date: 20180321
  Transmission Date: 20180509
  Serious: Yes (Disabling)
  Sender: FDA-Public Use
  Company Number: FI-TAKEDA-2018TUS006748

PATIENT
  Age: 55 Year
  Sex: Male

DRUGS (2)
  1. EXFORGE HCT [Concomitant]
     Active Substance: AMLODIPINE BESYLATE\HYDROCHLOROTHIAZIDE\VALSARTAN
     Indication: HYPERTENSION
     Dosage: UNK UNK, QD
     Route: 048
     Dates: start: 2009
  2. BRINTELLIX [Suspect]
     Active Substance: VORTIOXETINE HYDROBROMIDE
     Indication: DEPRESSION
     Dosage: 10 MG, QD
     Route: 048
     Dates: start: 20171015

REACTIONS (4)
  - Weight increased [Unknown]
  - Pollakiuria [Unknown]
  - Erectile dysfunction [Unknown]
  - Headache [Unknown]

NARRATIVE: CASE EVENT DATE: 20171101
